FAERS Safety Report 6126748-9 (Version None)
Quarter: 2009Q1

REPORT INFORMATION
  Report Type: 
  Country: None (occurrence: None)
  Receive Date: 20090320
  Receipt Date: 20090311
  Transmission Date: 20090719
  Serious: Yes (Death)
  Sender: FDA-Public Use
  Company Number: PE-SANOFI-SYNTHELABO-A01200902572

PATIENT
  Sex: Male
  Weight: 50 kg

DRUGS (8)
  1. FLUOROURACIL [Concomitant]
     Route: 042
     Dates: start: 20090219, end: 20090220
  2. AVE5026/ PLACEBO [Concomitant]
     Indication: THROMBOSIS PROPHYLAXIS
     Route: 058
     Dates: start: 20090219
  3. OXALIPLATIN [Suspect]
     Indication: GASTRIC CANCER
     Route: 041
     Dates: start: 20090219, end: 20090219
  4. LEUCOVORIN CALCIUM [Concomitant]
     Route: 041
     Dates: start: 20090219, end: 20090220
  5. RANITIDINE [Concomitant]
     Dates: start: 20090228, end: 20090228
  6. TRAMADOL HCL [Concomitant]
     Dates: start: 20090227, end: 20090228
  7. DIMENHYDRINATE [Concomitant]
     Dates: start: 20090227, end: 20090228
  8. DEXTROSE 5% [Concomitant]
     Dosage: UNK
     Dates: start: 20090227, end: 20090228

REACTIONS (2)
  - DISEASE PROGRESSION [None]
  - VOMITING [None]
